FAERS Safety Report 18417399 (Version 1)
Quarter: 2020Q4

REPORT INFORMATION
  Report Type: Spontaneous
  Country: US (occurrence: US)
  Receive Date: 20201022
  Receipt Date: 20201022
  Transmission Date: 20210114
  Serious: No
  Sender: FDA-Public Use
  Company Number: 2020SGN02691

PATIENT
  Sex: Female

DRUGS (2)
  1. TUKYSA [Suspect]
     Active Substance: TUCATINIB
     Indication: BREAST CANCER FEMALE
     Dosage: UNK
     Dates: start: 20200612
  2. XELODA [Suspect]
     Active Substance: CAPECITABINE
     Indication: BREAST CANCER FEMALE

REACTIONS (8)
  - Dizziness [Unknown]
  - Product dose omission issue [Unknown]
  - Skin hyperpigmentation [Unknown]
  - Fall [Unknown]
  - Dehydration [Recovering/Resolving]
  - Decreased appetite [Unknown]
  - Diarrhoea [Recovered/Resolved]
  - Increased appetite [Unknown]
